FAERS Safety Report 7115834-2 (Version None)
Quarter: 2010Q4

REPORT INFORMATION
  Report Type: 
  Country: None (occurrence: None)
  Receive Date: 20101122
  Receipt Date: 20101108
  Transmission Date: 20110411
  Serious: Yes (Hospitalization)
  Sender: FDA-Public Use
  Company Number: US-ELI_LILLY_AND_COMPANY-US201009001784

PATIENT
  Sex: Female

DRUGS (4)
  1. HUMALOG MIX 75/25 [Suspect]
     Dosage: UNK, UNKNOWN
     Route: 065
     Dates: start: 20100801
  2. FORTEO [Suspect]
     Indication: OSTEOPOROSIS
     Dosage: 20 UG, DAILY (1/D)
     Dates: start: 20100101
  3. METFORMIN [Concomitant]
     Dosage: 1000 MG, UNKNOWN
     Route: 065
  4. BYETTA [Concomitant]
     Dosage: 5 UG, UNKNOWN
     Route: 065

REACTIONS (1)
  - HYPOGLYCAEMIA [None]
